FAERS Safety Report 8005296-5 (Version None)
Quarter: 2011Q4

REPORT INFORMATION
  Report Type: 
  Country: None (occurrence: None)
  Receive Date: 20111223
  Receipt Date: 20111214
  Transmission Date: 20120403
  Serious: Yes (Hospitalization, Other)
  Sender: FDA-Public Use
  Company Number: PHHY2011JP109595

PATIENT
  Age: 14 Year
  Sex: Female

DRUGS (2)
  1. VALSARTAN [Suspect]
  2. CYCLOSPORINE [Suspect]
     Indication: NEPHROTIC SYNDROME

REACTIONS (3)
  - NASOPHARYNGITIS [None]
  - NEPHROTIC SYNDROME [None]
  - RENAL FAILURE ACUTE [None]
